FAERS Safety Report 8823368 (Version 1)
Quarter: 2012Q4

REPORT INFORMATION
  Report Type: 
  Country: US (occurrence: US)
  Receive Date: 20121003
  Receipt Date: 20121003
  Transmission Date: 20130627
  Serious: Yes (Hospitalization)
  Sender: FDA-Public Use
  Company Number: US-BRISTOL-MYERS SQUIBB COMPANY-16954323

PATIENT
  Age: 67 Year
  Sex: Male

DRUGS (5)
  1. AMIKACIN SULFATE [Suspect]
     Indication: MENINGITIS
     Dosage: Amikacin 20mg diluted wit 3ml of 0.9% Nacl.First dose-intralumbarly,Next-Intraventricular.
     Route: 042
  2. AMIKACIN SULFATE [Suspect]
     Indication: BACTERAEMIA
     Dosage: Amikacin 20mg diluted wit 3ml of 0.9% Nacl.First dose-intralumbarly,Next-Intraventricular.
     Route: 042
  3. IMIPENEM/CILASTATIN [Suspect]
     Indication: BACTERAEMIA
  4. IMIPENEM + CILASTATIN [Suspect]
     Indication: MENINGITIS
  5. PHENOBARBITAL [Concomitant]

REACTIONS (1)
  - Grand mal convulsion [Not Recovered/Not Resolved]
